FAERS Safety Report 10191286 (Version 2)
Quarter: 2014Q2

REPORT INFORMATION
  Report Type: Spontaneous
  Country: US (occurrence: US)
  Receive Date: 20140523
  Receipt Date: 20140529
  Transmission Date: 20141212
  Serious: No
  Sender: FDA-Public Use
  Company Number: US-PFIZER INC-2014139560

PATIENT
  Sex: Female

DRUGS (2)
  1. PRISTIQ [Suspect]
     Indication: ANXIETY
     Dosage: 50 MG, 1X/DAY
     Route: 048
     Dates: start: 2013, end: 201404
  2. PRISTIQ [Suspect]
     Indication: DEPRESSION
     Dosage: 50 MG, EVERY COUPLE OF DAYS OR EVERY THIRD DAY
     Route: 048
     Dates: start: 201404

REACTIONS (1)
  - Dizziness [Recovered/Resolved]
